FAERS Safety Report 6864601-3 (Version None)
Quarter: 2010Q3

REPORT INFORMATION
  Report Type: 
  Country: None (occurrence: None)
  Receive Date: 20100721
  Receipt Date: 20080716
  Transmission Date: 20110219
  Serious: Yes (Other)
  Sender: FDA-Public Use
  Company Number: US-PFIZER INC-2008029076

PATIENT
  Sex: Female
  Weight: 72.6 kg

DRUGS (3)
  1. CHANTIX [Suspect]
     Indication: SMOKING CESSATION THERAPY
     Dates: start: 20080324, end: 20080601
  2. VITAMINS [Concomitant]
  3. PAXIL [Concomitant]

REACTIONS (6)
  - ABDOMINAL DISTENSION [None]
  - ABNORMAL DREAMS [None]
  - COGNITIVE DISORDER [None]
  - FATIGUE [None]
  - INSOMNIA [None]
  - WEIGHT INCREASED [None]
